FAERS Safety Report 16949231 (Version 3)
Quarter: 2020Q3

REPORT INFORMATION
  Report Type: Report from Study
  Country: US (occurrence: US)
  Receive Date: 20191023
  Receipt Date: 20200730
  Transmission Date: 20201102
  Serious: Yes (Hospitalization, Other)
  Sender: FDA-Public Use
  Company Number: US-ROCHE-2450482

PATIENT
  Age: 86 Year
  Sex: Female
  Weight: 54.3 kg

DRUGS (4)
  1. ZITHROMAX [Concomitant]
     Active Substance: AZITHROMYCIN DIHYDRATE
  2. PULMICORT TURBUHALER [Concomitant]
     Active Substance: BUDESONIDE
  3. ATEZOLIZUMAB. [Suspect]
     Active Substance: ATEZOLIZUMAB
     Indication: BLADDER CANCER
     Dosage: CYCLE = 21 DAYS (MAX=17 CYCLES). ON 29/MAY/2019, RECEIVED LAST DOSE OF IV ATEZOLIZUMAB.
     Route: 042
     Dates: start: 20181102
  4. ALBUTEROL. [Concomitant]
     Active Substance: ALBUTEROL

REACTIONS (6)
  - Dyspnoea [Recovered/Resolved]
  - Hypertension [Unknown]
  - Fatigue [Unknown]
  - Hyponatraemia [Unknown]
  - Chills [Recovered/Resolved]
  - Hypoxia [Recovered/Resolved]

NARRATIVE: CASE EVENT DATE: 20190530
